FAERS Safety Report 9645614 (Version 1)
Quarter: 2013Q4

REPORT INFORMATION
  Report Type: Spontaneous
  Country: FI (occurrence: FI)
  Receive Date: 20131025
  Receipt Date: 20131025
  Transmission Date: 20140711
  Serious: Yes (Disabling)
  Sender: FDA-Public Use
  Company Number: FI-PFIZER INC-2013304185

PATIENT
  Age: 37 Year
  Sex: Male

DRUGS (1)
  1. CHAMPIX [Suspect]
     Indication: SMOKING CESSATION THERAPY
     Dosage: 2 MG PER DAY
     Route: 048
     Dates: start: 20100823, end: 2010

REACTIONS (6)
  - Mood altered [Not Recovered/Not Resolved]
  - Nervousness [Not Recovered/Not Resolved]
  - Depression [Not Recovered/Not Resolved]
  - Abnormal behaviour [Not Recovered/Not Resolved]
  - Economic problem [Not Recovered/Not Resolved]
  - Mental disorder [Not Recovered/Not Resolved]
